FAERS Safety Report 7691409-1 (Version None)
Quarter: 2011Q3

REPORT INFORMATION
  Report Type: 
  Country: None (occurrence: None)
  Receive Date: 20110818
  Receipt Date: 20110809
  Transmission Date: 20111222
  Serious: Yes (Other)
  Sender: FDA-Public Use
  Company Number: PHHY2011FR72259

PATIENT
  Sex: Female

DRUGS (2)
  1. TENSTATEN [Concomitant]
  2. LAMISIL [Suspect]
     Indication: ONYCHOMYCOSIS
     Dosage: 250 MG
     Route: 048
     Dates: start: 20110601, end: 20110727

REACTIONS (7)
  - PANIC ATTACK [None]
  - HYPERSOMNIA [None]
  - FORMICATION [None]
  - MALAISE [None]
  - DRY THROAT [None]
  - TREMOR [None]
  - NAUSEA [None]
